FAERS Safety Report 12505067 (Version 4)
Quarter: 2016Q4

REPORT INFORMATION
  Report Type: Spontaneous
  Country: US (occurrence: US)
  Receive Date: 20160628
  Receipt Date: 20161109
  Transmission Date: 20170207
  Serious: No
  Sender: FDA-Public Use
  Company Number: US-GLAXOSMITHKLINE-US2016089561

PATIENT
  Age: 43 Year
  Sex: Female

DRUGS (3)
  1. ALLI [Suspect]
     Active Substance: ORLISTAT
     Indication: WEIGHT LOSS DIET
     Dosage: UNK
     Dates: start: 2008
  2. ALLI [Suspect]
     Active Substance: ORLISTAT
     Dosage: UNK, 2 OR 3 PILLS AT A TIME
     Dates: start: 201509
  3. ALLI [Suspect]
     Active Substance: ORLISTAT
     Dosage: UNK, 2 OR 3 PILLS AT A TIME
     Dates: start: 201509

REACTIONS (4)
  - Treatment noncompliance [Unknown]
  - Steatorrhoea [Unknown]
  - Incorrect dose administered [Unknown]
  - Product quality issue [Unknown]
